FAERS Safety Report 9994358 (Version 1)
Quarter: 2014Q1

REPORT INFORMATION
  Report Type: Spontaneous
  Country: US (occurrence: US)
  Receive Date: 20140311
  Receipt Date: 20140311
  Transmission Date: 20141002
  Serious: Yes (Other)
  Sender: FDA-Public Use
  Company Number: US-ROCHE-1357591

PATIENT
  Sex: Female

DRUGS (5)
  1. BONIVA [Suspect]
     Indication: OSTEOPENIA
     Dosage: FOR 5 YEARS
     Route: 065
     Dates: end: 2013
  2. BONIVA [Suspect]
     Route: 065
     Dates: start: 2013, end: 2013
  3. SYNTHROID [Concomitant]
     Dosage: EVERY MORNING
     Route: 065
  4. PREDNISONE [Concomitant]
     Indication: SARCOIDOSIS
     Dosage: SMALL TO LARGE DOSES DAILY UP TO 40 MG
     Route: 065
  5. VENLAFAXINE [Concomitant]
     Route: 065
     Dates: start: 201308

REACTIONS (6)
  - Breast cancer [Unknown]
  - Intervertebral disc space narrowing [Not Recovered/Not Resolved]
  - Back disorder [Not Recovered/Not Resolved]
  - Body height decreased [Not Recovered/Not Resolved]
  - Hot flush [Unknown]
  - Bone density decreased [Not Recovered/Not Resolved]
